FAERS Safety Report 12099249 (Version 2)
Quarter: 2016Q2

REPORT INFORMATION
  Report Type: Spontaneous
  Country: US (occurrence: US)
  Receive Date: 20160222
  Receipt Date: 20160519
  Transmission Date: 20160815
  Serious: No
  Sender: FDA-Public Use
  Company Number: US-PFIZER INC-2016104818

PATIENT
  Age: 54 Year
  Sex: Male

DRUGS (7)
  1. NEURONTIN [Suspect]
     Active Substance: GABAPENTIN
     Indication: FACIAL PAIN
     Dosage: 600 MG, 1X/DAY
     Route: 048
     Dates: start: 20130129, end: 20140123
  2. OXCARBAZEPINE. [Concomitant]
     Active Substance: OXCARBAZEPINE
     Dosage: 150 MG, 2X/DAY (300 MG ? PILL )
  3. CLONAZEPAM. [Concomitant]
     Active Substance: CLONAZEPAM
     Dosage: 1 MG, 2X/DAY
  4. NEURONTIN [Suspect]
     Active Substance: GABAPENTIN
     Indication: BURNING MOUTH SYNDROME
  5. LYRICA [Concomitant]
     Active Substance: PREGABALIN
     Dosage: 50 MG, 1X/DAY
     Dates: start: 200308
  6. ADVIL [Suspect]
     Active Substance: IBUPROFEN
     Indication: FACIAL PAIN
  7. ADVIL [Suspect]
     Active Substance: IBUPROFEN
     Indication: BURNING MOUTH SYNDROME
     Dosage: 800 MG, AS NEEDED
     Dates: start: 200306

REACTIONS (5)
  - Rash [Unknown]
  - Somnolence [Unknown]
  - Joint swelling [Unknown]
  - Peripheral swelling [Unknown]
  - Drug ineffective for unapproved indication [Not Recovered/Not Resolved]

NARRATIVE: CASE EVENT DATE: 20031011
